FAERS Safety Report 9513401 (Version 1)
Quarter: 2013Q3

REPORT INFORMATION
  Report Type: Spontaneous
  Country: US (occurrence: US)
  Receive Date: 20130910
  Receipt Date: 20130910
  Transmission Date: 20140515
  Serious: No
  Sender: FDA-Public Use
  Company Number: US-TARO-2012P1052619

PATIENT
  Age: 88 Year
  Sex: Female
  Weight: 54.43 kg

DRUGS (7)
  1. WARFARIN SODIUM TABLETS USP 2MG [Suspect]
     Route: 048
     Dates: start: 2009, end: 20120820
  2. WARFARIN SODIUM TABLETS USP 2MG [Suspect]
     Route: 048
     Dates: start: 2009, end: 20120820
  3. WARFARIN SODIUM TABLETS USP 2MG [Suspect]
     Route: 048
     Dates: start: 20120820
  4. WARFARIN SODIUM TABLETS USP 2MG [Suspect]
     Route: 048
     Dates: start: 20120820
  5. MULTIVITAMIN [Concomitant]
  6. CALCIUM [Concomitant]
  7. IRON [Concomitant]

REACTIONS (3)
  - Coeliac disease [Not Recovered/Not Resolved]
  - Anaemia [Not Recovered/Not Resolved]
  - Anticoagulation drug level below therapeutic [Recovered/Resolved]
